FAERS Safety Report 16784888 (Version 1)
Quarter: 2019Q3

REPORT INFORMATION
  Report Type: Spontaneous
  Country: PT (occurrence: PT)
  Receive Date: 20190909
  Receipt Date: 20190909
  Transmission Date: 20191005
  Serious: Yes (Other)
  Sender: FDA-Public Use
  Company Number: PT-SCIEGEN PHARMACEUTICALS INC-2019SCILIT00253

PATIENT
  Age: 51 Year
  Sex: Female

DRUGS (9)
  1. METFORMIN HYDROCHLORIDETABLETS [Suspect]
     Active Substance: METFORMIN HYDROCHLORIDE
  2. CASCARA [Suspect]
     Active Substance: RHAMNUS PURSHIANA BARK EXTRACT
  3. BUPROPION HYDROCHLORIDE. [Interacting]
     Active Substance: BUPROPION HYDROCHLORIDE
  4. CHLORDIAZEPOXIDE. [Interacting]
     Active Substance: CHLORDIAZEPOXIDE
  5. HOODIA GORDONII [Interacting]
     Active Substance: DIETARY SUPPLEMENT
  6. FUROSEMIDE. [Interacting]
     Active Substance: FUROSEMIDE
  7. ORANGE EXTRACT [Interacting]
     Active Substance: DIETARY SUPPLEMENT\HERBALS
  8. ETHINYLESTRADIOL + GESTODENE [Interacting]
     Active Substance: ETHINYL ESTRADIOL\GESTODENE
  9. TOPIRAMATE. [Interacting]
     Active Substance: TOPIRAMATE

REACTIONS (4)
  - Intentional product misuse [Unknown]
  - Drug interaction [Unknown]
  - Cerebral venous thrombosis [Unknown]
  - Product use in unapproved indication [Unknown]
